FAERS Safety Report 24027769 (Version 2)
Quarter: 2024Q4

REPORT INFORMATION
  Report Type: Spontaneous
  Country: JP (occurrence: JP)
  Receive Date: 20240628
  Receipt Date: 20241001
  Transmission Date: 20250115
  Serious: Yes (Life-Threatening, Other)
  Sender: ABBVIE
  Company Number: JP-ABBVIE-5816948

PATIENT
  Age: 74 Year
  Sex: Female

DRUGS (6)
  1. VENCLEXTA [Suspect]
     Active Substance: VENETOCLAX
     Indication: Chronic lymphocytic leukaemia
     Dosage: LAST ADMIN DATE: AUG 2021
     Route: 048
     Dates: start: 20210810
  2. VENCLEXTA [Suspect]
     Active Substance: VENETOCLAX
     Indication: Chronic lymphocytic leukaemia
     Route: 048
     Dates: start: 202109
  3. VENCLEXTA [Suspect]
     Active Substance: VENETOCLAX
     Indication: Chronic lymphocytic leukaemia
     Dosage: LAST ADMIN DATE: AUG 2021?FORM STRENGTH: 10 MG
     Route: 048
     Dates: start: 20210820
  4. VENCLEXTA [Suspect]
     Active Substance: VENETOCLAX
     Indication: Chronic lymphocytic leukaemia
     Dosage: LAST ADMIN DATE: AUG 2021?FORM STRENGTH: 10 MG
     Route: 048
     Dates: start: 20210829
  5. RASBURICASE [Concomitant]
     Active Substance: RASBURICASE
     Indication: Chronic lymphocytic leukaemia
  6. Febuxostat od [Concomitant]
     Indication: Product used for unknown indication

REACTIONS (4)
  - Tumour lysis syndrome [Recovered/Resolved]
  - Circulatory collapse [Unknown]
  - Respiratory failure [Unknown]
  - Tracheostomy [Unknown]

NARRATIVE: CASE EVENT DATE: 20210801
